FAERS Safety Report 4424908-6 (Version None)
Quarter: 2004Q3

REPORT INFORMATION
  Report Type: 
  Country: None (occurrence: None)
  Receive Date: 20040809
  Receipt Date: 20040726
  Transmission Date: 20050211
  Serious: Yes (Hospitalization)
  Sender: FDA-Public Use
  Company Number: 104870ISR

PATIENT
  Age: 31 Year
  Sex: Female

DRUGS (7)
  1. DOXORUBICIN HCL [Suspect]
     Indication: MEDICATION ERROR
     Dosage: 14.5 MILLIGRAM
     Route: 024
  2. DAUNORUBICIN [Concomitant]
  3. CYCLOPHOSPHAMIDE [Concomitant]
  4. VINCRISTINE [Concomitant]
  5. PREDNISOLONE [Concomitant]
  6. CYTARABINE [Concomitant]
  7. METHOTREXATE [Concomitant]

REACTIONS (17)
  - ARACHNOIDITIS [None]
  - BLADDER DISORDER [None]
  - CSF PROTEIN INCREASED [None]
  - CSF WHITE BLOOD CELL COUNT POSITIVE [None]
  - HYDROCEPHALUS [None]
  - HYPOAESTHESIA [None]
  - IATROGENIC INJURY [None]
  - INCONTINENCE [None]
  - INTESTINAL FUNCTIONAL DISORDER [None]
  - MEDICATION ERROR [None]
  - MENINGITIS [None]
  - MYELOPATHY [None]
  - PARAPARESIS [None]
  - PARAPLEGIA [None]
  - SOMNOLENCE [None]
  - SPINAL CORD INJURY [None]
  - THERAPY NON-RESPONDER [None]
